FAERS Safety Report 8287665-1 (Version None)
Quarter: 2012Q2

REPORT INFORMATION
  Report Type: 
  Country: None (occurrence: None)
  Receive Date: 20120416
  Receipt Date: 20120412
  Transmission Date: 20120825
  Serious: Yes (Death)
  Sender: FDA-Public Use
  Company Number: PHHY2012HU017793

PATIENT

DRUGS (6)
  1. ZOMETA [Suspect]
     Dosage: UNK UKN, UNK
     Dates: start: 20081130
  2. ZOMETA [Suspect]
     Dosage: UNK UKN, UNK
     Dates: start: 20080618
  3. ZOMETA [Suspect]
     Dosage: UNK UKN, UNK
  4. ZOMETA [Suspect]
     Dosage: UNK UKN, UNK
     Dates: start: 20080902
  5. ZOMETA [Suspect]
     Dosage: UNK UKN, UNK
  6. ZOMETA [Suspect]
     Dosage: UNK UKN, UNK

REACTIONS (2)
  - NEOPLASM MALIGNANT [None]
  - NEOPLASM PROGRESSION [None]
